FAERS Safety Report 20047324 (Version 1)
Quarter: 2021Q4

REPORT INFORMATION
  Report Type: Spontaneous
  Country: US (occurrence: None)
  Receive Date: 20211109
  Receipt Date: 20211109
  Transmission Date: 20220303
  Serious: No
  Sender: FDA-Public Use
  Company Number: None

PATIENT
  Age: 62 Year
  Sex: Female

DRUGS (1)
  1. HUMIRA [Suspect]
     Active Substance: ADALIMUMAB
     Indication: Psoriasis
     Dosage: FREQUENCY : EVERY OTHER WEEK;?
     Route: 058
     Dates: start: 20210509

REACTIONS (7)
  - Visual impairment [None]
  - Vitreous floaters [None]
  - Visual impairment [None]
  - Vision blurred [None]
  - Impaired driving ability [None]
  - Reading disorder [None]
  - Anaemia [None]

NARRATIVE: CASE EVENT DATE: 20210509
